FAERS Safety Report 10085049 (Version 2)
Quarter: 2014Q3

REPORT INFORMATION
  Report Type: Spontaneous
  Country: FR (occurrence: FR)
  Receive Date: 20140417
  Receipt Date: 20140910
  Transmission Date: 20150326
  Serious: Yes (Congenital Anomaly, Other)
  Sender: FDA-Public Use
  Company Number: FR-ABBVIE-14P-056-1226867-00

PATIENT
  Sex: Female

DRUGS (1)
  1. DEPAKINE [Suspect]
     Active Substance: VALPROATE SODIUM
     Indication: MATERNAL EXPOSURE TIMING UNSPECIFIED
     Route: 064

REACTIONS (17)
  - Autism spectrum disorder [Unknown]
  - Abnormal behaviour [Unknown]
  - Multiple congenital abnormalities [Unknown]
  - Speech disorder [Unknown]
  - Congenital oral malformation [Unknown]
  - Foetal exposure during pregnancy [Unknown]
  - Myopia [Unknown]
  - Ill-defined disorder [Unknown]
  - Anomaly of orbit, congenital [Unknown]
  - Dysmorphism [Unknown]
  - Psychomotor retardation [Unknown]
  - Mental retardation [Unknown]
  - Learning disorder [Unknown]
  - Foetal anticonvulsant syndrome [Unknown]
  - Hypotonia [Unknown]
  - Dysmorphism [Unknown]
  - Strabismus [Unknown]

NARRATIVE: CASE EVENT DATE: 20030818
